FAERS Safety Report 20410088 (Version 1)
Quarter: 2022Q1

REPORT INFORMATION
  Report Type: Report from Study
  Country: US (occurrence: US)
  Receive Date: 20220201
  Receipt Date: 20220201
  Transmission Date: 20220423
  Serious: No
  Sender: FDA-Public Use
  Company Number: US-KYOWAKIRIN-2022BKK000606

PATIENT

DRUGS (1)
  1. CRYSVITA [Suspect]
     Active Substance: BUROSUMAB-TWZA
     Indication: Hereditary hypophosphataemic rickets
     Dosage: 70 MG, EVERY 4 WEEKS
     Route: 065
     Dates: start: 20180723

REACTIONS (5)
  - Rhinorrhoea [Recovered/Resolved]
  - Fatigue [Recovered/Resolved]
  - COVID-19 [Recovered/Resolved]
  - Headache [Recovered/Resolved]
  - Exposure to SARS-CoV-2 [Recovered/Resolved]
